FAERS Safety Report 6339664-4 (Version None)
Quarter: 2009Q3

REPORT INFORMATION
  Report Type: 
  Country: None (occurrence: None)
  Receive Date: 20090903
  Receipt Date: 20090828
  Transmission Date: 20100115
  Serious: Yes (Hospitalization)
  Sender: FDA-Public Use
  Company Number: FI-AVENTIS-200919695GDDC

PATIENT
  Age: 60 Year
  Sex: Male

DRUGS (7)
  1. GLIMEPIRIDE [Suspect]
     Indication: DIABETES MELLITUS
     Dates: start: 20061011
  2. METFORMIN HCL [Suspect]
     Dates: start: 20060401
  3. ZOCOR [Concomitant]
  4. NITROSID [Concomitant]
     Dates: start: 20060709
  5. COZAAR [Concomitant]
  6. EMCONCOR                           /00802601/ [Concomitant]
  7. LANSOPRAZOLE [Concomitant]

REACTIONS (1)
  - BLADDER CANCER [None]
